FAERS Safety Report 9771220 (Version 1)
Quarter: 2013Q4

REPORT INFORMATION
  Report Type: Spontaneous
  Country: US (occurrence: US)
  Receive Date: 20131218
  Receipt Date: 20131218
  Transmission Date: 20140711
  Serious: No
  Sender: FDA-Public Use
  Company Number: US-PFIZER INC-2013357626

PATIENT
  Age: 57 Year
  Sex: Male

DRUGS (1)
  1. SUTENT [Suspect]
     Indication: RENAL CANCER
     Dosage: 50 MG, DAILY CYCLIC (4 WEEKS ON, 2 WEEKS OFF)
     Route: 048

REACTIONS (8)
  - Genital discomfort [Not Recovered/Not Resolved]
  - Mucosal dryness [Not Recovered/Not Resolved]
  - Dry skin [Not Recovered/Not Resolved]
  - Genital pain [Not Recovered/Not Resolved]
  - Genital burning sensation [Not Recovered/Not Resolved]
  - Proctalgia [Not Recovered/Not Resolved]
  - Anorectal discomfort [Not Recovered/Not Resolved]
  - Hyperkeratosis [Not Recovered/Not Resolved]
